FAERS Safety Report 5164651-1 (Version None)
Quarter: 2006Q4

REPORT INFORMATION
  Report Type: 
  Country: None (occurrence: None)
  Receive Date: 20061205
  Receipt Date: 20060718
  Transmission Date: 20070319
  Serious: Yes (Hospitalization, Disabling, Other)
  Sender: FDA-Public Use
  Company Number: US-ELI_LILLY_AND_COMPANY-US200607003445

PATIENT
  Age: 77 Year
  Sex: Female

DRUGS (7)
  1. FORTEO [Suspect]
     Indication: OSTEOPOROSIS
     Dosage: 20 UG, DAILY (1/D)
     Dates: start: 20040101, end: 20050101
  2. FORTEO [Suspect]
     Dosage: UNK, UNK
     Dates: start: 20050901, end: 20060901
  3. TRANDATE                                /UNK/ [Concomitant]
  4. NORVASC [Concomitant]
  5. DIOVAN [Concomitant]
  6. CELEBREX [Concomitant]
  7. PREDNISONE TAB [Concomitant]

REACTIONS (4)
  - BLINDNESS [None]
  - BLOOD DISORDER [None]
  - GASTRIC ULCER HAEMORRHAGE [None]
  - RETINAL ARTERY OCCLUSION [None]
